FAERS Safety Report 6878530-2 (Version None)
Quarter: 2010Q3

REPORT INFORMATION
  Report Type: 
  Country: None (occurrence: None)
  Receive Date: 20100728
  Receipt Date: 20100714
  Transmission Date: 20110219
  Serious: Yes (Other)
  Sender: FDA-Public Use
  Company Number: SE-PFIZER INC-2010076891

PATIENT
  Age: 75 Year
  Sex: Female
  Weight: 64 kg

DRUGS (4)
  1. TOVIAZ [Suspect]
     Indication: HYPERTONIC BLADDER
     Dosage: 8 MG, UNK
     Dates: start: 20100301
  2. NAPROXEN [Suspect]
     Indication: ARTHRALGIA
  3. CALCIUM [Concomitant]
     Dosage: UNK
  4. VAGIFEM [Concomitant]
     Dosage: 25 MG, UNK

REACTIONS (1)
  - DIARRHOEA [None]
